FAERS Safety Report 9361490 (Version 1)
Quarter: 2013Q2

REPORT INFORMATION
  Report Type: Spontaneous
  Country: US (occurrence: US)
  Receive Date: 20130621
  Receipt Date: 20130621
  Transmission Date: 20140414
  Serious: Yes (Death, Other)
  Sender: FDA-Public Use
  Company Number: US-JNJFOC-20130607230

PATIENT
  Sex: Female

DRUGS (4)
  1. DOXORUBICIN [Suspect]
     Indication: BREAST CANCER
     Dosage: 15 MINUTES EVERY 21 DAYS
     Route: 042
  2. DOCETAXEL [Suspect]
     Indication: BREAST CANCER
     Dosage: OVER 60 MINUTES EVERY 21 DAYS
     Route: 042
  3. INVESTIGATIONAL PRODUCT [Suspect]
     Indication: BREAST CANCER
     Route: 042
  4. DEXAMETHASONE [Concomitant]
     Indication: PROPHYLAXIS
     Route: 048

REACTIONS (1)
  - Cardiotoxicity [Fatal]
